FAERS Safety Report 8585221-9 (Version None)
Quarter: 2012Q3

REPORT INFORMATION
  Report Type: 
  Country: None (occurrence: None)
  Receive Date: 20120810
  Receipt Date: 20120808
  Transmission Date: 20120928
  Serious: Yes (Hospitalization)
  Sender: FDA-Public Use
  Company Number: PHEH2012US015566

PATIENT

DRUGS (1)
  1. TASIGNA [Suspect]
     Indication: CHRONIC MYELOID LEUKAEMIA
     Dosage: 4 DF, FOR 2 DAYS
     Route: 048

REACTIONS (4)
  - COUGH [None]
  - DYSPNOEA [None]
  - PNEUMONITIS [None]
  - NAUSEA [None]
